FAERS Safety Report 8413248-6 (Version None)
Quarter: 2012Q2

REPORT INFORMATION
  Report Type: 
  Country: None (occurrence: None)
  Receive Date: 20120323
  Receipt Date: 20110222
  Transmission Date: 20120825
  Serious: Yes (Hospitalization)
  Sender: FDA-Public Use
  Company Number: 163-21880-11022634

PATIENT
  Age: 66 Year
  Sex: Male

DRUGS (13)
  1. ACYCLOVIR (ACICLOVIR) (UNKNOWN) [Concomitant]
  2. REVLIMID [Suspect]
     Indication: MULTIPLE MYELOMA
     Dosage: 5 MG, 1 IN 1 D, PO 10 MG, DAILY X 21 DAYS, PO
     Route: 048
     Dates: start: 20110101
  3. REVLIMID [Suspect]
     Indication: MULTIPLE MYELOMA
     Dosage: 5 MG, 1 IN 1 D, PO 10 MG, DAILY X 21 DAYS, PO
     Route: 048
     Dates: start: 20101201
  4. ERYTHROMYCIN (ERYTHROMYCIN) (UNKNOWN) [Concomitant]
  5. BACTRIM [Concomitant]
  6. VITAMIN D (ERGOCALCIFEROL) (UNKNOWN) [Concomitant]
  7. COREG (CARVEDILOL) (UNKNOWN) [Concomitant]
  8. XANAX [Concomitant]
  9. PAXIL (PAROXETINE HYDROCHLORIDE) (UNKNOWN) [Concomitant]
  10. CALCIUM (CALCIUM) (UNKNOWN) [Concomitant]
  11. PRILOSEC (OMEPRAZOLE) (UNKNOWN) [Concomitant]
  12. LIPITOR [Concomitant]
  13. ECOTRIN (ACETYLSALICYLIC ACID) (UNKNOWN) [Concomitant]

REACTIONS (1)
  - PNEUMONIA [None]
